FAERS Safety Report 7534755-4 (Version None)
Quarter: 2011Q2

REPORT INFORMATION
  Report Type: 
  Country: None (occurrence: None)
  Receive Date: 20110609
  Receipt Date: 20080724
  Transmission Date: 20111010
  Serious: Yes (Death)
  Sender: FDA-Public Use
  Company Number: PHHY2008CA14816

PATIENT
  Sex: Female

DRUGS (2)
  1. CLOZAPINE [Suspect]
     Indication: SCHIZOPHRENIA
     Dosage: 450 MG PER DAY
     Route: 048
     Dates: start: 20051128, end: 20080624
  2. CLOZAPINE [Suspect]
     Indication: SCHIZOAFFECTIVE DISORDER

REACTIONS (1)
  - LUNG NEOPLASM MALIGNANT [None]
